FAERS Safety Report 23628213 (Version 1)
Quarter: 2024Q1

REPORT INFORMATION
  Report Type: Spontaneous
  Country: NL (occurrence: NL)
  Receive Date: 20240313
  Receipt Date: 20240313
  Transmission Date: 20240409
  Serious: Yes (Other)
  Sender: FDA-Public Use
  Company Number: NL-ORGANON-O2402NLD003023

PATIENT
  Sex: Female

DRUGS (1)
  1. ETONOGESTREL [Suspect]
     Active Substance: ETONOGESTREL
     Dosage: 1 IMPLANT
     Route: 059
     Dates: start: 20231003

REACTIONS (5)
  - Anaemia [Unknown]
  - Heavy menstrual bleeding [Unknown]
  - Menstruation irregular [Unknown]
  - Hypomenorrhoea [Recovered/Resolved]
  - Menstrual disorder [Unknown]

NARRATIVE: CASE EVENT DATE: 20231003
